FAERS Safety Report 5912103-0 (Version None)
Quarter: 2008Q4

REPORT INFORMATION
  Report Type: 
  Country: None (occurrence: None)
  Receive Date: 20081006
  Receipt Date: 20080923
  Transmission Date: 20090506
  Serious: Yes (Other)
  Sender: FDA-Public Use
  Company Number: 0248

PATIENT
  Age: 38 Year
  Sex: Female

DRUGS (3)
  1. METHYLDOPA [Suspect]
     Indication: HYPERTENSION
     Dosage: 1 TABLET , PO
     Route: 048
     Dates: start: 20080801
  2. HYDRALAZINE HCL [Concomitant]
  3. IRON POLYMALTOSE [Concomitant]

REACTIONS (6)
  - CAESAREAN SECTION [None]
  - DRUG EXPOSURE DURING PREGNANCY [None]
  - DRUG EXPOSURE VIA BREAST MILK [None]
  - PRE-ECLAMPSIA [None]
  - PREMATURE BABY [None]
  - SMALL FOR DATES BABY [None]
